FAERS Safety Report 22746234 (Version 4)
Quarter: 2023Q4

REPORT INFORMATION
  Report Type: Report from Study
  Country: US (occurrence: US)
  Receive Date: 20230725
  Receipt Date: 20231012
  Transmission Date: 20240109
  Serious: Yes (Hospitalization, Other)
  Sender: FDA-Public Use
  Company Number: US-ABBVIE-5338820

PATIENT
  Age: 68 Year
  Sex: Female
  Weight: 88.45 kg

DRUGS (8)
  1. RINVOQ [Suspect]
     Active Substance: UPADACITINIB
     Indication: Rheumatoid arthritis
     Route: 048
     Dates: start: 2021
  2. RINVOQ [Suspect]
     Active Substance: UPADACITINIB
     Indication: Rheumatoid arthritis
     Route: 048
     Dates: start: 20221008, end: 2023
  3. RINVOQ [Suspect]
     Active Substance: UPADACITINIB
     Indication: Rheumatoid arthritis
     Route: 048
     Dates: start: 20230310, end: 20230820
  4. SERTRALINE [Concomitant]
     Active Substance: SERTRALINE HYDROCHLORIDE
     Indication: Depression
     Dates: start: 1993
  5. BUPROPION [Concomitant]
     Active Substance: BUPROPION
     Indication: Product used for unknown indication
  6. ASPIRIN [Concomitant]
     Active Substance: ASPIRIN
     Indication: Product used for unknown indication
  7. LISINOPRIL [Concomitant]
     Active Substance: LISINOPRIL
     Indication: Product used for unknown indication
  8. MELATONIN [Concomitant]
     Active Substance: MELATONIN
     Indication: Product used for unknown indication
     Dates: start: 2017

REACTIONS (13)
  - Ovarian cancer [Not Recovered/Not Resolved]
  - Fallopian tube cancer [Recovered/Resolved]
  - Fracture [Recovered/Resolved]
  - Intestinal obstruction [Recovered/Resolved]
  - Cardiac infection [Recovered/Resolved]
  - Complication associated with device [Recovered/Resolved]
  - Gene mutation identification test positive [Recovered/Resolved]
  - Bacterial infection [Recovered/Resolved]
  - Cardiac disorder [Recovered/Resolved]
  - Gene mutation identification test positive [Not Recovered/Not Resolved]
  - Gait disturbance [Not Recovered/Not Resolved]
  - Bacterial infection [Recovered/Resolved]
  - Fallopian tube cancer [Not Recovered/Not Resolved]

NARRATIVE: CASE EVENT DATE: 20220506
